FAERS Safety Report 4981840-7 (Version None)
Quarter: 2006Q2

REPORT INFORMATION
  Report Type: 
  Country: None (occurrence: None)
  Receive Date: 20060421
  Receipt Date: 20060421
  Transmission Date: 20061013
  Serious: No
  Sender: FDA-Public Use
  Company Number: None

PATIENT
  Sex: Female
  Weight: 68.0396 kg

DRUGS (8)
  1. COUMADIN [Suspect]
     Indication: THROMBOSIS PROPHYLAXIS
     Dosage: 5 MG X1 PO
     Route: 048
     Dates: start: 20060329
  2. COUMADIN [Suspect]
     Dosage: 6 MG Q DAY PO
     Route: 048
  3. LEVOTHYROXINE SODIUM [Concomitant]
  4. FOSAMAX [Concomitant]
  5. LASIX [Concomitant]
  6. MICRO-K [Concomitant]
  7. COZAAR [Concomitant]
  8. ATENOLOL [Concomitant]

REACTIONS (2)
  - INTERNATIONAL NORMALISED RATIO INCREASED [None]
  - PROTHROMBIN TIME PROLONGED [None]
